FAERS Safety Report 17667259 (Version 4)
Quarter: 2020Q4

REPORT INFORMATION
  Report Type: Report from Study
  Country: None (occurrence: JP)
  Receive Date: 20200414
  Receipt Date: 20201105
  Transmission Date: 20210113
  Serious: Yes (Death, Life-Threatening, Other)
  Sender: FDA-Public Use
  Company Number: JP-ABBVIE-20P-087-3363106-00

PATIENT
  Age: 57 Year
  Sex: Male
  Weight: 55.5 kg

DRUGS (9)
  1. OPSO [Concomitant]
     Active Substance: MORPHINE HYDROCHLORIDE
     Indication: BULBOSPINAL MUSCULAR ATROPHY CONGENITAL
     Dosage: 5 MILLIGRAM
     Route: 065
     Dates: start: 20191018, end: 20200409
  2. OXYCONTIN [Concomitant]
     Active Substance: OXYCODONE HYDROCHLORIDE
     Indication: BULBOSPINAL MUSCULAR ATROPHY CONGENITAL
     Dosage: 5 MILLIGRAM, QD
     Route: 065
     Dates: start: 20191205, end: 20200409
  3. BETANIS [Concomitant]
     Active Substance: MIRABEGRON
     Indication: BULBOSPINAL MUSCULAR ATROPHY CONGENITAL
     Dosage: 50 MILLIGRAM, QD
     Route: 065
     Dates: start: 20191007, end: 20200409
  4. MAGMITT [Concomitant]
     Active Substance: MAGNESIUM OXIDE
     Indication: CONSTIPATION
     Dosage: 330 MILLIGRAM, TID
     Route: 065
     Dates: start: 20200316, end: 20200409
  5. LEUPLIN [Suspect]
     Active Substance: LEUPROLIDE ACETATE
     Indication: BULBOSPINAL MUSCULAR ATROPHY CONGENITAL
     Route: 058
     Dates: start: 20190711, end: 20191226
  6. TAMSULOSIN HYDROCHLORIDE. [Concomitant]
     Active Substance: TAMSULOSIN HYDROCHLORIDE
     Indication: BULBOSPINAL MUSCULAR ATROPHY CONGENITAL
     Dosage: 0.2 MILLIGRAM, QD
     Route: 065
     Dates: start: 20191003, end: 20200409
  7. AMLODIPINE BESILATE/TELMISARTAN [Concomitant]
     Active Substance: AMLODIPINE\TELMISARTAN
     Indication: HYPERTENSION
     Dosage: UNK
     Route: 065
     Dates: end: 20200409
  8. PRANLUKAST [Concomitant]
     Active Substance: PRANLUKAST
     Indication: RHINITIS ALLERGIC
     Dosage: 225 MILLIGRAM, BID
     Route: 065
     Dates: start: 20191007, end: 20200409
  9. FEXOFENADINE HYDROCHLORIDE. [Concomitant]
     Active Substance: FEXOFENADINE HYDROCHLORIDE
     Indication: RHINITIS ALLERGIC
     Dosage: 60 MILLIGRAM, BID
     Route: 065
     Dates: start: 20191007, end: 20200409

REACTIONS (4)
  - Respiratory failure [Fatal]
  - Condition aggravated [Unknown]
  - Pneumonia aspiration [Recovering/Resolving]
  - Dyslipidaemia [Unknown]

NARRATIVE: CASE EVENT DATE: 20190711
